FAERS Safety Report 24750938 (Version 1)
Quarter: 2024Q4

REPORT INFORMATION
  Report Type: Report from Study
  Country: US (occurrence: US)
  Receive Date: 20241219
  Receipt Date: 20241219
  Transmission Date: 20250115
  Serious: No
  Sender: ROCHE
  Company Number: US-ROCHE-10000160970

PATIENT
  Age: 32 Year
  Sex: Female

DRUGS (1)
  1. OCREVUS [Suspect]
     Active Substance: OCRELIZUMAB
     Indication: Relapsing multiple sclerosis
     Dosage: 300MG/10 ML, ON DAY 1 AND DAY 15, THEN 600 MG, EVERY 24 WEEK
     Route: 042
     Dates: start: 20241121

REACTIONS (3)
  - Abdominal discomfort [Not Recovered/Not Resolved]
  - Influenza [Unknown]
  - Flushing [Unknown]
